FAERS Safety Report 11514574 (Version 3)
Quarter: 2015Q4

REPORT INFORMATION
  Report Type: Spontaneous
  Country: FR (occurrence: FR)
  Receive Date: 20150916
  Receipt Date: 20151102
  Transmission Date: 20160304
  Serious: Yes (Hospitalization)
  Sender: FDA-Public Use
  Company Number: FR-TEVA-592791ISR

PATIENT
  Age: 63 Year
  Sex: Male

DRUGS (14)
  1. VELBE [Suspect]
     Active Substance: VINBLASTINE SULFATE
     Indication: HODGKIN^S DISEASE
     Dosage: 12 MILLIGRAM DAILY; FIRST COURSE OF CHEMOTHERAPY PROTOCOL ABVD
     Route: 041
     Dates: start: 20150811, end: 20150811
  2. BLEOMYCINE BELLON 15 MG [Suspect]
     Active Substance: BLEOMYCIN SULFATE
     Dosage: 20 MILLIGRAM DAILY; FIRST COURSE CHEMOTHERAPY PROTOCOL ABVD, DAY 15
     Route: 041
     Dates: start: 20150825, end: 20150825
  3. DOXORUBICINE TEVA [Suspect]
     Active Substance: DOXORUBICIN
     Dosage: 50 MILLIGRAM DAILY; FIRST COURSE OF CHEMOTHERAPY PROTOCOL ABVD, DAY 15
     Route: 041
     Dates: start: 20150825, end: 20150825
  4. METHYLPREDNISOLONE MERCK [Suspect]
     Active Substance: METHYLPREDNISOLONE
     Indication: PREMEDICATION
     Dosage: 20 MILLIGRAM DAILY;
     Route: 040
     Dates: start: 20150811, end: 20150811
  5. CORTANCYL [Concomitant]
     Active Substance: PREDNISONE
     Dosage: 40 MILLIGRAM DAILY; IN THE MORNING
     Route: 042
     Dates: start: 20150811, end: 20150811
  6. DACARBAZINE MEDAC [Suspect]
     Active Substance: DACARBAZINE
     Indication: HODGKIN^S DISEASE
     Dosage: 740 MILLIGRAM DAILY; FIRST COURSE OF CHEMOTHERAPY PROTOCOL ABVD
     Route: 042
     Dates: start: 20150811, end: 20150811
  7. VELBE [Suspect]
     Active Substance: VINBLASTINE SULFATE
     Dosage: 12 MILLIGRAM DAILY; FIRST COURSE OF CHEMOTHERAPY PROTOCOL ABVD, DAY 15
     Route: 041
     Dates: start: 20150825, end: 20150825
  8. SOLUMEDROL 20 MG/2 ML [Concomitant]
     Indication: PREMEDICATION
     Dosage: 1 DOSAGE FORMS DAILY; FORM: LYOPHILISATE AND SOLUTION FOR PARENTERAL USE. IN THE MORNING.
     Route: 042
     Dates: start: 20150811, end: 20150811
  9. ZOPHREN 8 MG/4 ML [Concomitant]
     Indication: PREMEDICATION
     Dosage: 1 DOSAGE FORMS DAILY; FORM: INJECTABLE SOLUTION IN PRE-FILLED SYRINGE
     Route: 042
     Dates: start: 20150811, end: 20150811
  10. VANCOMYCINE SANDOZ [Concomitant]
     Active Substance: VANCOMYCIN
     Indication: CLOSTRIDIUM DIFFICILE COLITIS
     Route: 048
     Dates: start: 20150809, end: 20150819
  11. DOXORUBICINE TEVA [Suspect]
     Active Substance: DOXORUBICIN
     Indication: HODGKIN^S DISEASE
     Dosage: 50 MILLIGRAM DAILY; FIRST COURSE OF CHEMOTHERAPY PROTOCOL ABVD
     Route: 041
     Dates: start: 20150811, end: 20150811
  12. BLEOMYCINE BELLON 15 MG [Suspect]
     Active Substance: BLEOMYCIN SULFATE
     Indication: HODGKIN^S DISEASE
     Dosage: 20 MILLIGRAM DAILY; FIRST COURSE OF CHEMOTHERAPY PROTOCOL ABVD
     Route: 041
     Dates: start: 20150811, end: 20150811
  13. POLARAMINE 5 MG/1 ML [Concomitant]
     Indication: PREMEDICATION
     Dosage: 1 DOSAGE FORMS DAILY; AMPOULE; IN THE MORNING
     Route: 040
     Dates: start: 20150811, end: 20150811
  14. DACARBAZINE MEDAC [Suspect]
     Active Substance: DACARBAZINE
     Dosage: 740 MILLIGRAM DAILY; FIRST COURSE OF CHEMOTHERAPY PROTOCOL ABVD, DAY 15
     Route: 042
     Dates: start: 20150825, end: 20150825

REACTIONS (11)
  - Pyrexia [Recovered/Resolved]
  - Dyspnoea [Recovered/Resolved]
  - Chills [Recovered/Resolved]
  - Hypotension [Recovered/Resolved]
  - Tachycardia [Recovered/Resolved]
  - Hyperthermia [Recovered/Resolved]
  - Pleural effusion [Recovered/Resolved]
  - Livedo reticularis [Recovered/Resolved]
  - Pericardial effusion [Unknown]
  - Hyperhidrosis [Recovered/Resolved]
  - Hypoxia [Recovered/Resolved]

NARRATIVE: CASE EVENT DATE: 20150811
